FAERS Safety Report 22660619 (Version 2)
Quarter: 2023Q4

REPORT INFORMATION
  Report Type: Spontaneous
  Country: US (occurrence: US)
  Receive Date: 20230630
  Receipt Date: 20231221
  Transmission Date: 20240110
  Serious: Yes (Other)
  Sender: FDA-Public Use
  Company Number: US-BAYER-2023A087087

PATIENT
  Age: 31 Year
  Sex: Male

DRUGS (1)
  1. KOVALTRY [Suspect]
     Active Substance: ANTIHEMOPHILIC FACTOR, HUMAN RECOMBINANT
     Dosage: 3000 UNITS
     Route: 042

REACTIONS (2)
  - Pharyngitis streptococcal [Recovered/Resolved]
  - Limb injury [None]

NARRATIVE: CASE EVENT DATE: 20230520
